FAERS Safety Report 9451483 (Version 4)
Quarter: 2013Q3

REPORT INFORMATION
  Report Type: Report from Study
  Country: JP (occurrence: JP)
  Receive Date: 20130810
  Receipt Date: 20130920
  Transmission Date: 20140515
  Serious: Yes (Hospitalization, Other)
  Sender: FDA-Public Use
  Company Number: JP-ROCHE-1259474

PATIENT
  Age: 71 Year
  Sex: Male
  Weight: 69 kg

DRUGS (29)
  1. ERLOTINIB [Suspect]
     Indication: LUNG ADENOCARCINOMA METASTATIC
     Route: 048
     Dates: start: 20130213
  2. ERLOTINIB [Suspect]
     Route: 048
     Dates: start: 20130306, end: 20130320
  3. ERLOTINIB [Suspect]
     Route: 048
     Dates: start: 20130402
  4. ERLOTINIB [Suspect]
     Route: 048
     Dates: start: 20130423, end: 20130502
  5. ERLOTINIB [Suspect]
     Route: 048
     Dates: start: 20130528, end: 20130601
  6. BEVACIZUMAB [Suspect]
     Indication: LUNG ADENOCARCINOMA METASTATIC
     Dosage: TREATMENT LINE: 1 PRIMARY?15 MG/KG
     Route: 041
     Dates: start: 20121003, end: 20121003
  7. BEVACIZUMAB [Suspect]
     Dosage: TREATMENT LINE: 1 PRIMARY?15 MG/KG
     Route: 041
     Dates: start: 20121101, end: 20121101
  8. BEVACIZUMAB [Suspect]
     Dosage: TREATMENT LINE: 1 PRIMARY
     Route: 041
     Dates: start: 20121206, end: 20121206
  9. BEVACIZUMAB [Suspect]
     Dosage: TREATMENT LINE: 1 PRIMARY?15 MG/KG
     Route: 041
     Dates: start: 20130108, end: 20130108
  10. BEVACIZUMAB [Suspect]
     Dosage: TREATMENT LINE: 1 PRIMARY?15 MG/KG
     Route: 041
     Dates: start: 20130213, end: 20130213
  11. BEVACIZUMAB [Suspect]
     Dosage: TREATMENT LINE: 1 PRIMARY?15 MG/KG
     Route: 041
     Dates: start: 20130306, end: 20130306
  12. BEVACIZUMAB [Suspect]
     Dosage: TREATMENT LINE: 1 PRIMARY?15 MG/KG
     Route: 041
     Dates: start: 20130402, end: 20130402
  13. BEVACIZUMAB [Suspect]
     Dosage: TREATMENT LINE: 1 PRIMARY
     Route: 041
     Dates: start: 20130423, end: 20130423
  14. BEVACIZUMAB [Suspect]
     Dosage: TREATMENT LINE: 1 PRIMARY?15 MG/KG
     Route: 041
     Dates: start: 20130528, end: 20130528
  15. BEVACIZUMAB [Suspect]
     Dosage: TREATMENT LINE: 1 PRIMARY COMPLETED TREATMENT CYCLE NUMBER: 10
     Route: 041
     Dates: start: 20130618, end: 20130618
  16. CARBOPLATIN [Suspect]
     Indication: LUNG ADENOCARCINOMA METASTATIC
     Route: 041
     Dates: start: 20121003, end: 20121003
  17. CARBOPLATIN [Suspect]
     Route: 041
     Dates: start: 20121101, end: 20121101
  18. CARBOPLATIN [Suspect]
     Route: 041
     Dates: start: 20121206, end: 20121206
  19. CARBOPLATIN [Suspect]
     Route: 041
     Dates: start: 20130108, end: 20130108
  20. PEMETREXED DISODIUM [Suspect]
     Indication: LUNG ADENOCARCINOMA METASTATIC
     Route: 041
     Dates: start: 20121003, end: 20121003
  21. PEMETREXED DISODIUM [Suspect]
     Route: 041
     Dates: start: 20121101, end: 20121101
  22. PEMETREXED DISODIUM [Suspect]
     Route: 041
     Dates: start: 20121206, end: 20121206
  23. PEMETREXED DISODIUM [Suspect]
     Route: 041
     Dates: start: 20130108, end: 20130108
  24. SPIRIVA [Concomitant]
     Indication: EMPHYSEMA
     Route: 055
     Dates: start: 201007
  25. MAGMITT [Concomitant]
     Indication: CONSTIPATION PROPHYLAXIS
     Route: 048
     Dates: start: 20121008
  26. SELBEX [Concomitant]
     Indication: GASTRITIS
     Route: 048
     Dates: start: 20121101
  27. ZANTAC [Concomitant]
     Indication: GASTRITIS
     Route: 048
     Dates: start: 20121101
  28. RHYTHMY [Concomitant]
     Indication: INSOMNIA
     Route: 048
     Dates: start: 20121101
  29. PURSENNID [Concomitant]
     Indication: CONSTIPATION
     Route: 048
     Dates: start: 20121101

REACTIONS (6)
  - Oedema peripheral [Recovering/Resolving]
  - Dermatitis acneiform [Not Recovered/Not Resolved]
  - Gait disturbance [Not Recovered/Not Resolved]
  - Pleural effusion [Unknown]
  - Skin erosion [Unknown]
  - Thrombosis [Not Recovered/Not Resolved]
